FAERS Safety Report 4981608-1 (Version None)
Quarter: 2006Q2

REPORT INFORMATION
  Report Type: 
  Country: None (occurrence: None)
  Receive Date: 20060420
  Receipt Date: 20060420
  Transmission Date: 20061013
  Serious: Yes (Life-Threatening, Hospitalization)
  Sender: FDA-Public Use
  Company Number: None

PATIENT
  Age: 56 Year
  Sex: Female
  Weight: 112 kg

DRUGS (14)
  1. LASIX [Suspect]
     Dosage: 80 DAY [CHRONIC]
  2. METOLAZONE [Suspect]
     Dosage: 5 MG Q O DAY [CHRONIC]
  3. DUONEBS [Concomitant]
  4. IRON [Concomitant]
  5. CALCIUM GLUCONATE [Concomitant]
  6. MINOXIDIL [Concomitant]
  7. DOXAZOSIN [Concomitant]
  8. VIT B6 [Concomitant]
  9. TYLENOL (CAPLET) [Concomitant]
  10. KLONOPIN [Concomitant]
  11. BENICAR [Concomitant]
  12. METOPROLOL SUCCINATE [Concomitant]
  13. LANTUS [Concomitant]
  14. LEVAQUIN [Concomitant]

REACTIONS (6)
  - AZOTAEMIA [None]
  - BLOOD CREATININE INCREASED [None]
  - BLOOD SODIUM DECREASED [None]
  - MALAISE [None]
  - ORAL INTAKE REDUCED [None]
  - UPPER RESPIRATORY TRACT INFECTION [None]
